FAERS Safety Report 10651757 (Version 1)
Quarter: 2014Q4

REPORT INFORMATION
  Report Type: Spontaneous
  Country: US (occurrence: None)
  Receive Date: 20141212
  Receipt Date: 20141212
  Transmission Date: 20150529
  Serious: Yes (Hospitalization)
  Sender: FDA-Public Use
  Company Number: None

PATIENT
  Age: 67 Year
  Sex: Male
  Weight: 84.5 kg

DRUGS (2)
  1. OXYCODONE [Suspect]
     Active Substance: OXYCODONE
     Indication: PAIN
     Route: 048
     Dates: start: 20140108, end: 20141014
  2. ALPRAZOLAM. [Suspect]
     Active Substance: ALPRAZOLAM
     Indication: ANXIETY
     Route: 048
     Dates: start: 20140721, end: 20141014

REACTIONS (5)
  - Confusional state [None]
  - Overdose [None]
  - Mental status changes [None]
  - Drug withdrawal syndrome [None]
  - Toxicity to various agents [None]

NARRATIVE: CASE EVENT DATE: 20141014
